FAERS Safety Report 7452944-4 (Version None)
Quarter: 2011Q2

REPORT INFORMATION
  Report Type: 
  Country: None (occurrence: None)
  Receive Date: 20110502
  Receipt Date: 20110502
  Transmission Date: 20111010
  Serious: Yes (Other)
  Sender: FDA-Public Use
  Company Number: JP-PFIZER INC-2011093319

PATIENT
  Age: 50 Year
  Sex: Male

DRUGS (3)
  1. SOLU-MEDROL [Suspect]
     Dosage: 40 MG, UNK
     Route: 042
     Dates: start: 20080701, end: 20080701
  2. SOLU-MEDROL [Suspect]
     Dosage: 125 MG, UNK
     Route: 042
     Dates: start: 20080601, end: 20080701
  3. SOLU-MEDROL [Suspect]
     Dosage: 500 MG, UNK
     Route: 042
     Dates: start: 20080601, end: 20080601

REACTIONS (2)
  - ARTHRITIS [None]
  - OSTEONECROSIS [None]
